FAERS Safety Report 5345126-3 (Version None)
Quarter: 2007Q2

REPORT INFORMATION
  Report Type: 
  Country: None (occurrence: None)
  Receive Date: 20070601
  Receipt Date: 20070523
  Transmission Date: 20071010
  Serious: Yes (Hospitalization)
  Sender: FDA-Public Use
  Company Number: 163-21880-07031346

PATIENT
  Age: 81 Year
  Sex: Female

DRUGS (2)
  1. REVLIMID [Suspect]
     Indication: MULTIPLE MYELOMA
     Dosage: 10-25MG, TAKE AS DIRECTED, ORAL
     Route: 048
     Dates: start: 20061005, end: 20070417
  2. REVLIMID [Suspect]

REACTIONS (3)
  - CELLULITIS [None]
  - DRUG TOXICITY [None]
  - RASH [None]
